FAERS Safety Report 15876972 (Version 2)
Quarter: 2019Q1

REPORT INFORMATION
  Report Type: Spontaneous
  Country: US (occurrence: US)
  Receive Date: 20190128
  Receipt Date: 20190311
  Transmission Date: 20190417
  Serious: Yes (Hospitalization, Other)
  Sender: FDA-Public Use
  Company Number: US-CONCORDIA PHARMACEUTICALS INC.-E2B_00018386

PATIENT
  Age: 5 Month
  Sex: Male

DRUGS (1)
  1. PREDNISOLONE. [Suspect]
     Active Substance: PREDNISOLONE
     Indication: INFANTILE SPASMS
     Dosage: 12 TOTAL DOSES

REACTIONS (2)
  - Varicella zoster virus infection [Recovered/Resolved]
  - Condition aggravated [Recovered/Resolved]
